FAERS Safety Report 15364299 (Version 1)
Quarter: 2018Q3

REPORT INFORMATION
  Report Type: Spontaneous
  Country: None (occurrence: CO)
  Receive Date: 20180909
  Receipt Date: 20180909
  Transmission Date: 20181010
  Serious: Yes (Other)
  Sender: FDA-Public Use
  Company Number: CO-POPULATION COUNCIL, INC.-2054777

PATIENT
  Sex: Female

DRUGS (1)
  1. JADELLE [Suspect]
     Active Substance: LEVONORGESTREL
     Indication: CONTRACEPTION
     Route: 061
     Dates: start: 20180706

REACTIONS (4)
  - Headache [None]
  - Dizziness [None]
  - Genital haemorrhage [Not Recovered/Not Resolved]
  - Weight decreased [None]
